FAERS Safety Report 9842665 (Version 1)
Quarter: 2014Q1

REPORT INFORMATION
  Report Type: Spontaneous
  Country: FR (occurrence: FR)
  Receive Date: 20140124
  Receipt Date: 20140124
  Transmission Date: 20141002
  Serious: Yes (Hospitalization)
  Sender: FDA-Public Use
  Company Number: FR-SA-2014SA008893

PATIENT
  Age: 65 Year
  Sex: Female

DRUGS (4)
  1. EVOLTRA [Suspect]
     Indication: ACUTE MYELOID LEUKAEMIA
     Route: 042
     Dates: start: 20131221, end: 20131225
  2. CYTARABINE [Suspect]
     Indication: ACUTE MYELOID LEUKAEMIA
     Route: 042
     Dates: start: 20131221, end: 20131225
  3. ONDANSETRON [Concomitant]
  4. METOCLOPRAMIDE [Concomitant]

REACTIONS (1)
  - Dermatitis bullous [Recovered/Resolved]
